FAERS Safety Report 18261309 (Version 7)
Quarter: 2021Q3

REPORT INFORMATION
  Report Type: Report from Study
  Country: BR (occurrence: BR)
  Receive Date: 20200914
  Receipt Date: 20210803
  Transmission Date: 20211014
  Serious: Yes (Hospitalization, Other)
  Sender: FDA-Public Use
  Company Number: NVSC2020BR244560

PATIENT
  Age: 65 Year
  Sex: Female

DRUGS (4)
  1. DIOVAN [Concomitant]
     Active Substance: VALSARTAN
     Indication: PRODUCT USED FOR UNKNOWN INDICATION
     Dosage: UNK
     Route: 065
  2. FEMARA [Suspect]
     Active Substance: LETROZOLE
     Indication: BREAST CANCER METASTATIC
     Dosage: 2 MG
     Route: 065
     Dates: start: 201603, end: 20201005
  3. FEMARA [Suspect]
     Active Substance: LETROZOLE
     Dosage: 1 DF, QD
     Route: 065
     Dates: start: 201605
  4. FULVESTRANT. [Concomitant]
     Active Substance: FULVESTRANT
     Indication: BREAST CANCER METASTATIC
     Dosage: UNK (2 INJECTIONS, EVERY 28 DAYS)
     Route: 065
     Dates: start: 20201006

REACTIONS (43)
  - Metastases to spine [Unknown]
  - Malignant neoplasm progression [Not Recovered/Not Resolved]
  - Vascular pain [Unknown]
  - Spinal pain [Unknown]
  - Micturition disorder [Unknown]
  - Bone pain [Unknown]
  - Asthenia [Unknown]
  - Swelling [Recovered/Resolved]
  - Metastasis [Recovered/Resolved]
  - Cardiac failure [Unknown]
  - Spinal fracture [Not Recovered/Not Resolved]
  - Metastases to lung [Unknown]
  - Pain in extremity [Not Recovered/Not Resolved]
  - Abdominal distension [Recovered/Resolved]
  - Bone disorder [Unknown]
  - Neoplasm malignant [Unknown]
  - Localised infection [Recovered/Resolved]
  - Renal cyst [Unknown]
  - Nodule [Unknown]
  - Scab [Unknown]
  - Loss of consciousness [Unknown]
  - Purulence [Recovered/Resolved]
  - Arthralgia [Unknown]
  - Renal disorder [Unknown]
  - Scratch [Unknown]
  - Pulmonary mass [Unknown]
  - Skin exfoliation [Not Recovered/Not Resolved]
  - Dyspnoea [Recovered/Resolved]
  - Dysstasia [Unknown]
  - Back pain [Unknown]
  - Hyperhidrosis [Unknown]
  - Pain [Unknown]
  - Malaise [Unknown]
  - Malaise [Recovered/Resolved]
  - Uterine leiomyoma [Unknown]
  - Syncope [Recovered/Resolved]
  - Chronic gastritis [Unknown]
  - Breast cancer metastatic [Not Recovered/Not Resolved]
  - Pruritus [Not Recovered/Not Resolved]
  - Vein disorder [Unknown]
  - Umbilical hernia [Unknown]
  - Gastritis [Unknown]
  - Bone fragmentation [Unknown]

NARRATIVE: CASE EVENT DATE: 20160512
